FAERS Safety Report 10976156 (Version 3)
Quarter: 2015Q2

REPORT INFORMATION
  Report Type: Spontaneous
  Country: US (occurrence: US)
  Receive Date: 20150401
  Receipt Date: 20150416
  Transmission Date: 20150821
  Serious: Yes (Other)
  Sender: FDA-Public Use
  Company Number: US-BIOMARINAP-US-2015-105964

PATIENT
  Sex: Male
  Weight: 18 kg

DRUGS (1)
  1. NAGLAZYME [Suspect]
     Active Substance: GALSULFASE
     Indication: MUCOPOLYSACCHARIDOSIS VI
     Dosage: UNK UNK, QW
     Route: 041
     Dates: start: 20150312

REACTIONS (2)
  - Wheezing [Recovered/Resolved]
  - Viral upper respiratory tract infection [Recovered/Resolved]
